FAERS Safety Report 4638970-9 (Version None)
Quarter: 2005Q2

REPORT INFORMATION
  Report Type: 
  Country: None (occurrence: None)
  Receive Date: 20050419
  Receipt Date: 20050408
  Transmission Date: 20051028
  Serious: Yes (Life-Threatening, Hospitalization, Disabling)
  Sender: FDA-Public Use
  Company Number: US-MERCK-0504USA01241

PATIENT
  Age: 75 Year
  Sex: Female

DRUGS (1)
  1. CLINORIL [Suspect]
     Indication: ARTHRITIS
     Route: 048
     Dates: start: 19890101, end: 19890101

REACTIONS (6)
  - BONE MARROW DISORDER [None]
  - HAEMOGLOBIN DECREASED [None]
  - PAIN IN EXTREMITY [None]
  - RED BLOOD CELL ABNORMALITY [None]
  - WHITE BLOOD CELL COUNT ABNORMAL [None]
  - WHITE BLOOD CELL DISORDER [None]
